FAERS Safety Report 20864808 (Version 1)
Quarter: 2022Q2

REPORT INFORMATION
  Report Type: Spontaneous
  Country: US (occurrence: US)
  Receive Date: 20220524
  Receipt Date: 20220524
  Transmission Date: 20220720
  Serious: Yes (Other)
  Sender: FDA-Public Use
  Company Number: US-STRIDES ARCOLAB LIMITED-2021SP030546

PATIENT
  Age: 19 Year
  Sex: Female

DRUGS (2)
  1. CYPROHEPTADINE [Suspect]
     Active Substance: CYPROHEPTADINE
     Indication: Serotonin syndrome
     Dosage: UNK
     Route: 065
  2. BUPROPION [Concomitant]
     Active Substance: BUPROPION
     Indication: Product used for unknown indication
     Dosage: ESTIMATED 53, 150-MG EXTENDED-RELEASE TABLETS
     Route: 048

REACTIONS (2)
  - Therapy partial responder [Unknown]
  - Off label use [Unknown]
